FAERS Safety Report 11120737 (Version 1)
Quarter: 2015Q2

REPORT INFORMATION
  Report Type: Spontaneous
  Country: US (occurrence: US)
  Receive Date: 20150519
  Receipt Date: 20150519
  Transmission Date: 20150821
  Serious: No
  Sender: FDA-Public Use
  Company Number: US-BAYER-2015-180200

PATIENT
  Sex: Female

DRUGS (1)
  1. BETASERON [Suspect]
     Active Substance: INTERFERON BETA-1B

REACTIONS (7)
  - Adverse event [None]
  - Somnolence [None]
  - Hot flush [None]
  - Tremor [None]
  - Chills [None]
  - Myalgia [None]
  - Discomfort [None]
